FAERS Safety Report 5758581-1 (Version None)
Quarter: 2008Q2

REPORT INFORMATION
  Report Type: 
  Country: None (occurrence: None)
  Receive Date: 20080604
  Receipt Date: 20080529
  Transmission Date: 20081010
  Serious: Yes (Hospitalization)
  Sender: FDA-Public Use
  Company Number: B0512418A

PATIENT
  Age: 85 Year
  Sex: Female

DRUGS (11)
  1. PAROXETINE HCL [Suspect]
     Indication: DRUG USE FOR UNKNOWN INDICATION
     Dosage: 20MG PER DAY
     Route: 048
     Dates: end: 20080201
  2. SINTROM [Suspect]
     Indication: ARRHYTHMIA
     Dosage: 4MG PER DAY
     Route: 048
     Dates: end: 20080129
  3. PLAVIX [Suspect]
     Indication: ACUTE CORONARY SYNDROME
     Route: 048
     Dates: start: 20080129, end: 20080129
  4. ASPIRIN [Suspect]
     Indication: ACUTE CORONARY SYNDROME
     Dosage: 75MG PER DAY
     Route: 048
     Dates: start: 20080129, end: 20080129
  5. LOVENOX [Suspect]
     Indication: ACUTE CORONARY SYNDROME
     Dosage: 6000IU PER DAY
     Route: 058
     Dates: start: 20080129, end: 20080129
  6. MOPRAL [Concomitant]
     Indication: DRUG USE FOR UNKNOWN INDICATION
     Dosage: 20MG PER DAY
     Route: 048
  7. ZOLPIDEM [Concomitant]
     Indication: DRUG USE FOR UNKNOWN INDICATION
     Dosage: 5MG PER DAY
     Route: 048
  8. PHYSIOTENS [Concomitant]
     Indication: HYPERTENSION
     Dosage: .2MG PER DAY
     Route: 048
  9. IRBESARTAN [Concomitant]
     Indication: HYPERTENSION
     Dosage: 300MG PER DAY
     Route: 048
  10. CARDENSIEL [Concomitant]
     Indication: HYPERTENSION
     Dosage: 5MG PER DAY
     Route: 048
  11. DIGITALINE NATIVELLE [Concomitant]
     Indication: ATRIAL FIBRILLATION
     Route: 048
     Dates: end: 20080128

REACTIONS (28)
  - ABDOMINAL PAIN [None]
  - ACUTE CORONARY SYNDROME [None]
  - AORTIC STENOSIS [None]
  - BLOOD GLUCOSE INCREASED [None]
  - BLOOD SODIUM DECREASED [None]
  - CARDIAC MURMUR [None]
  - CEREBELLAR HAEMATOMA [None]
  - CEREBELLAR SYNDROME [None]
  - CHEST PAIN [None]
  - DIZZINESS [None]
  - DRUG INTERACTION [None]
  - DYSPNOEA EXERTIONAL [None]
  - ELECTROCARDIOGRAM ST SEGMENT DEPRESSION [None]
  - FEELING HOT [None]
  - HEMISENSORY NEGLECT [None]
  - HYPOKINESIA [None]
  - INTERNATIONAL NORMALISED RATIO INCREASED [None]
  - LEFT ATRIAL DILATATION [None]
  - LEFT VENTRICULAR HYPERTROPHY [None]
  - MITRAL VALVE CALCIFICATION [None]
  - NAUSEA [None]
  - OVERDOSE [None]
  - PAIN [None]
  - PLATELET COUNT INCREASED [None]
  - TROPONIN INCREASED [None]
  - VISUAL DISTURBANCE [None]
  - VOMITING [None]
  - WHITE BLOOD CELL COUNT INCREASED [None]
